FAERS Safety Report 6156694-6 (Version None)
Quarter: 2009Q2

REPORT INFORMATION
  Report Type: 
  Country: None (occurrence: None)
  Receive Date: 20090413
  Receipt Date: 20090413
  Transmission Date: 20091009
  Serious: Yes (Hospitalization)
  Sender: FDA-Public Use
  Company Number: None

PATIENT
  Age: 68 Year
  Sex: Male
  Weight: 90.9 kg

DRUGS (12)
  1. DECITABINE [Suspect]
     Indication: ACUTE MYELOID LEUKAEMIA
     Dosage: 20MG/MIV D1-5
     Dates: start: 20090331, end: 20090404
  2. ARSENIC TRIOXIDE [Suspect]
     Dosage: 0.2 MG M2 IV, D1-5, THEN QW
     Route: 042
     Dates: start: 20090331, end: 20090404
  3. ARSENIC TRIOXIDE [Suspect]
     Dosage: 0.2 MG M2 IV, D1-5, THEN QW
     Route: 042
     Dates: start: 20090406
  4. ASCORBIC ACID [Suspect]
     Dosage: 1000 MG IV, D1-5, THEN QW
     Dates: start: 20090331, end: 20090404
  5. ASCORBIC ACID [Suspect]
     Dosage: 1000 MG IV, D1-5, THEN QW
     Dates: start: 20090406
  6. HYZAAR [Concomitant]
  7. LIPITOR [Concomitant]
  8. SYNTHROID [Concomitant]
  9. COLACE [Concomitant]
  10. VALTREX [Concomitant]
  11. FIB RESTORE NUTRITIONAL SUPPLEMENT [Concomitant]
  12. CLASSIC SUPPLEMENT [Concomitant]

REACTIONS (2)
  - PLEURAL EFFUSION [None]
  - PYREXIA [None]
